FAERS Safety Report 5872126-7 (Version None)
Quarter: 2008Q3

REPORT INFORMATION
  Report Type: 
  Country: None (occurrence: None)
  Receive Date: 20080905
  Receipt Date: 20080904
  Transmission Date: 20090109
  Serious: Yes (Hospitalization)
  Sender: FDA-Public Use
  Company Number: D0058203A

PATIENT
  Age: 23 Year
  Sex: Male
  Weight: 68 kg

DRUGS (2)
  1. ACYCLOVIR [Suspect]
     Dosage: 800MG FIVE TIMES PER DAY
     Route: 042
     Dates: start: 20080723, end: 20080724
  2. MUTAFLOR [Concomitant]
     Indication: ENTERITIS
     Dosage: 1UNIT THREE TIMES PER DAY
     Route: 048
     Dates: start: 20080724, end: 20080805

REACTIONS (4)
  - BLOOD CREATININE INCREASED [None]
  - OLIGURIA [None]
  - OVERDOSE [None]
  - RENAL FAILURE ACUTE [None]
